FAERS Safety Report 9962987 (Version 2)
Quarter: 2014Q1

REPORT INFORMATION
  Report Type: Spontaneous
  Country: US (occurrence: US)
  Receive Date: 20140305
  Receipt Date: 20140324
  Transmission Date: 20141002
  Serious: Yes (Other)
  Sender: FDA-Public Use
  Company Number: US-PFIZER INC-2014059419

PATIENT
  Age: 63 Year
  Sex: Female
  Weight: 58.05 kg

DRUGS (4)
  1. ESTRING [Suspect]
     Indication: ATROPHIC VULVOVAGINITIS
     Dosage: REPLACE EVERY 3 MONTHS
     Route: 067
     Dates: start: 2005, end: 20140128
  2. CALCIUM [Concomitant]
     Dosage: UNK
  3. VITAMIN D [Concomitant]
     Dosage: UNK
  4. AMBIEN [Concomitant]
     Dosage: UNK

REACTIONS (2)
  - Vaginal ulceration [Unknown]
  - Vaginal haemorrhage [Unknown]
